FAERS Safety Report 7606961-1 (Version None)
Quarter: 2011Q3

REPORT INFORMATION
  Report Type: 
  Country: None (occurrence: None)
  Receive Date: 20110706
  Receipt Date: 20110701
  Transmission Date: 20111222
  Serious: Yes (Death)
  Sender: FDA-Public Use
  Company Number: SP03559

PATIENT
  Age: 42 Year
  Sex: Male

DRUGS (2)
  1. AZASAN [Suspect]
     Dosage: 112.5 MG (112.5 MG, 1 IN 1 D), ORAL
     Route: 048
     Dates: start: 20090121
  2. COLAZAL [Suspect]
     Dosage: 7500 MG (3750 MG, 2 IN 1 D), ORAL
     Route: 048
     Dates: start: 20090121

REACTIONS (1)
  - DEATH [None]
